FAERS Safety Report 5037038-X (Version None)
Quarter: 2006Q2

REPORT INFORMATION
  Report Type: 
  Country: None (occurrence: None)
  Receive Date: 20060601
  Receipt Date: 20050928
  Transmission Date: 20061013
  Serious: Yes (Hospitalization, Other)
  Sender: FDA-Public Use
  Company Number: 2005103471

PATIENT
  Age: 55 Year
  Sex: Male
  Weight: 74.8435 kg

DRUGS (6)
  1. FELDENE [Suspect]
     Indication: ILL-DEFINED DISORDER
     Dosage: (20 MG, UNKNOWN), ORAL
     Route: 048
     Dates: end: 20050613
  2. PEG-INTRON [Suspect]
     Indication: HEPATITIS C
     Dosage: 120 MCG (120 MCG, 1 IN 1 WK), SUBCUTANEOUS
     Route: 058
     Dates: start: 20050411, end: 20050613
  3. REBETOL [Suspect]
     Indication: HEPATITIS C
     Dosage: 800 MG (800 MG, 1 IN 1 D), ORAL
     Route: 048
     Dates: start: 20050411, end: 20050613
  4. MORPHINE [Concomitant]
  5. PAXIL [Concomitant]
  6. SOMA COMPOUND ^WALLACE^ [Concomitant]

REACTIONS (5)
  - GASTRITIS EROSIVE [None]
  - GASTROINTESTINAL HAEMORRHAGE [None]
  - HEPATITIS C [None]
  - PNEUMONIA [None]
  - WEIGHT FLUCTUATION [None]
